FAERS Safety Report 9643538 (Version 2)
Quarter: 2013Q4

REPORT INFORMATION
  Report Type: Spontaneous
  Country: US (occurrence: US)
  Receive Date: 20131024
  Receipt Date: 20131216
  Transmission Date: 20140711
  Serious: No
  Sender: FDA-Public Use
  Company Number: US-009507513-1309USA014273

PATIENT
  Sex: Male

DRUGS (8)
  1. VICTRELIS [Suspect]
     Indication: HEPATITIS C
     Dosage: UNK
     Route: 048
     Dates: start: 20130801
  2. RIBASPHERE [Suspect]
     Indication: HEPATITIS C
     Dosage: 3 IN THE MORNING AND 2 IN THE NIGHT
     Route: 048
     Dates: start: 20130703, end: 201309
  3. RIBASPHERE [Suspect]
     Dosage: UNK
     Dates: start: 20130703
  4. RIBASPHERE [Suspect]
     Dosage: 2 IN THE MORNING AND 2 IN THE NIGHT
     Dates: start: 2013
  5. RIBASPHERE [Suspect]
     Dosage: 2 DF, QAM
     Dates: start: 2013
  6. RIBASPHERE [Suspect]
     Dosage: 1 DF, QPM
     Dates: start: 2013
  7. PEGASYS [Suspect]
     Indication: HEPATITIS C
     Dosage: UNK
     Dates: start: 20130702, end: 20130924
  8. PEGASYS [Suspect]
     Dosage: UNK
     Dates: start: 20130702

REACTIONS (12)
  - Blood calcium decreased [Unknown]
  - Laboratory test abnormal [Unknown]
  - Hypertension [Unknown]
  - Vertigo [Unknown]
  - Skin ulcer [Unknown]
  - Malaise [Unknown]
  - Headache [Unknown]
  - Nausea [Unknown]
  - Vomiting [Unknown]
  - Irritability [Unknown]
  - Platelet count decreased [Unknown]
  - Inappropriate schedule of drug administration [Unknown]
